FAERS Safety Report 14035573 (Version 1)
Quarter: 2017Q4

REPORT INFORMATION
  Report Type: Spontaneous
  Country: US (occurrence: US)
  Receive Date: 20171003
  Receipt Date: 20171003
  Transmission Date: 20180321
  Serious: Yes (Other)
  Sender: FDA-Public Use
  Company Number: PHHY2017US140890

PATIENT
  Age: 58 Year
  Sex: Female

DRUGS (1)
  1. ARGATROBAN. [Suspect]
     Active Substance: ARGATROBAN
     Indication: COAGULOPATHY
     Route: 065

REACTIONS (2)
  - Platelet count decreased [Unknown]
  - Heparin-induced thrombocytopenia [Unknown]
